FAERS Safety Report 24760699 (Version 2)
Quarter: 2025Q1

REPORT INFORMATION
  Report Type: Report from Study
  Country: US (occurrence: US)
  Receive Date: 20241220
  Receipt Date: 20250102
  Transmission Date: 20250408
  Serious: Yes (Other)
  Sender: PFIZER
  Company Number: US-PFIZER INC-202400328497

PATIENT

DRUGS (4)
  1. BEVACIZUMAB [Suspect]
     Active Substance: BEVACIZUMAB
     Indication: Isocitrate dehydrogenase gene mutation
     Route: 042
  2. BEVACIZUMAB [Suspect]
     Active Substance: BEVACIZUMAB
     Indication: Glioma
  3. IVOSIDENIB [Suspect]
     Active Substance: IVOSIDENIB
     Indication: Isocitrate dehydrogenase gene mutation
     Dosage: 500 MG, DAILY
     Route: 048
  4. IVOSIDENIB [Suspect]
     Active Substance: IVOSIDENIB
     Indication: Glioma

REACTIONS (1)
  - Electrocardiogram QT prolonged [Unknown]
